FAERS Safety Report 11767700 (Version 1)
Quarter: 2015Q4

REPORT INFORMATION
  Report Type: Spontaneous
  Country: JP (occurrence: JP)
  Receive Date: 20151123
  Receipt Date: 20151123
  Transmission Date: 20160304
  Serious: Yes (Death, Other)
  Sender: FDA-Public Use
  Company Number: JP-TEVA-586149ISR

PATIENT
  Age: 88 Year
  Sex: Female
  Weight: 41 kg

DRUGS (10)
  1. NORVASC [Concomitant]
     Active Substance: AMLODIPINE BESYLATE
     Indication: HYPERTENSION
     Dosage: 5 MILLIGRAM DAILY; DRUG WITHDRAWN
     Route: 048
     Dates: end: 20150721
  2. ACETAMINOPHEN. [Concomitant]
     Active Substance: ACETAMINOPHEN
     Indication: CANCER PAIN
     Dosage: 1500 MILLIGRAM DAILY; DRUG WITHDRAWN
     Route: 048
     Dates: start: 20150712, end: 20150721
  3. URSO [Concomitant]
     Active Substance: URSODIOL
     Indication: HEPATIC CIRRHOSIS
     Dosage: 600 MILLIGRAM DAILY; DRUG WITHDRAWN
     Route: 048
     Dates: end: 20150721
  4. FENTANYL CITRATE. [Concomitant]
     Active Substance: FENTANYL CITRATE
     Indication: CANCER PAIN
     Dosage: 2 MILLIGRAM DAILY;
     Route: 062
     Dates: start: 20150625, end: 20150715
  5. FENTANYL CITRATE. [Concomitant]
     Active Substance: FENTANYL CITRATE
     Dosage: 3 MILLIGRAM DAILY; DRUG WITHDRAWN
     Route: 062
     Dates: start: 20150615, end: 20150722
  6. OXYCODONE HYDROCHLORIDE HYDRATE [Concomitant]
     Active Substance: OXYCODONE HYDROCHLORIDE
     Indication: BREAKTHROUGH PAIN
     Dosage: 5 MILLIGRAM DAILY; DRUG WITHDRAWN
     Route: 048
     Dates: start: 20150706, end: 20150721
  7. E-FEN BUCCAL [Suspect]
     Active Substance: FENTANYL CITRATE
     Indication: BREAKTHROUGH PAIN
     Dosage: 50 UG - 150 UG
     Route: 002
     Dates: start: 20150713, end: 20150715
  8. ONEALFA [Concomitant]
     Active Substance: ALFACALCIDOL
     Indication: OSTEOPOROSIS
     Dosage: .5 MILLIGRAM DAILY; DRUG WITHDRAWN
     Route: 048
     Dates: end: 20150721
  9. LIVACT [Concomitant]
     Active Substance: AMINO ACIDS
     Indication: HEPATIC CIRRHOSIS
     Dosage: 12.45 GRAM DAILY; DRUG WITHDRAWN
     Route: 048
     Dates: end: 20150721
  10. E-FEN BUCCAL [Suspect]
     Active Substance: FENTANYL CITRATE
     Dosage: 100 UG - 300UG
     Route: 002
     Dates: start: 20150715, end: 20150721

REACTIONS (2)
  - Hepatocellular carcinoma [Fatal]
  - Dry mouth [Not Recovered/Not Resolved]

NARRATIVE: CASE EVENT DATE: 20150713
